FAERS Safety Report 6045955-7 (Version None)
Quarter: 2009Q1

REPORT INFORMATION
  Report Type: 
  Country: None (occurrence: None)
  Receive Date: 20090116
  Receipt Date: 20090105
  Transmission Date: 20090719
  Serious: Yes (Life-Threatening, Hospitalization)
  Sender: FDA-Public Use
  Company Number: 1000001596

PATIENT
  Age: 62 Year
  Sex: Female
  Weight: 76 kg

DRUGS (4)
  1. ESCITALOPRAM OXALATE [Suspect]
     Indication: ANXIETY
     Dosage: 20 MG (20 MG, 1 IN 1 D) ,ORAL
     Route: 048
     Dates: start: 20080301, end: 20081007
  2. ALOPAM (10 MILLIGRAM, TABLETS) [Concomitant]
  3. CRESTOR [Concomitant]
  4. ZOLPIDEM [Concomitant]

REACTIONS (5)
  - GASTROINTESTINAL HAEMORRHAGE [None]
  - HAEMODIALYSIS [None]
  - NEPHROPATHY TOXIC [None]
  - RENAL FAILURE [None]
  - TUBULOINTERSTITIAL NEPHRITIS [None]
